FAERS Safety Report 5224440-6 (Version None)
Quarter: 2007Q1

REPORT INFORMATION
  Report Type: 
  Country: None (occurrence: None)
  Receive Date: 20070126
  Receipt Date: 20070110
  Transmission Date: 20070707
  Serious: Yes (Hospitalization)
  Sender: FDA-Public Use
  Company Number: 2007000077

PATIENT
  Age: 73 Year
  Sex: Male

DRUGS (1)
  1. TARCEVA [Suspect]
     Indication: PANCREATIC CARCINOMA STAGE IV
     Dosage: 150 MG QD, ORAL; 100 MG QD, ORAL
     Route: 048

REACTIONS (8)
  - ANURIA [None]
  - BLOOD BILIRUBIN INCREASED [None]
  - CHROMATURIA [None]
  - DYSPNOEA [None]
  - FAECAL INCONTINENCE [None]
  - MOVEMENT DISORDER [None]
  - UNEVALUABLE EVENT [None]
  - URINARY INCONTINENCE [None]
